FAERS Safety Report 19454592 (Version 1)
Quarter: 2021Q2

REPORT INFORMATION
  Report Type: Other
  Country: US (occurrence: US)
  Receive Date: 20210623
  Receipt Date: 20210623
  Transmission Date: 20210717
  Serious: No
  Sender: FDA-Public Use
  Company Number: US-NOVA LABORATORIES LIMITED-2113030

PATIENT
  Age: 17 Year
  Sex: Female

DRUGS (7)
  1. DAUNORUBICIN [Suspect]
     Active Substance: DAUNORUBICIN
  2. CYTARABINE. [Suspect]
     Active Substance: CYTARABINE
  3. METHOTREXATE SODIUM. [Suspect]
     Active Substance: METHOTREXATE SODIUM
     Route: 037
  4. PURIXAN [Suspect]
     Active Substance: MERCAPTOPURINE
     Indication: ACUTE LYMPHOCYTIC LEUKAEMIA
  5. PEGASPARGASE [Suspect]
     Active Substance: PEGASPARGASE
  6. VINCRISTINE [Suspect]
     Active Substance: VINCRISTINE
  7. PREDNISONE. [Suspect]
     Active Substance: PREDNISONE

REACTIONS (2)
  - Necrotising soft tissue infection [Recovered/Resolved]
  - Escherichia infection [Recovered/Resolved]
